FAERS Safety Report 10914687 (Version 2)
Quarter: 2015Q1

REPORT INFORMATION
  Report Type: Report from Study
  Country: KH (occurrence: KH)
  Receive Date: 20150313
  Receipt Date: 20150319
  Transmission Date: 20150721
  Serious: Yes (Death, Other)
  Sender: FDA-Public Use
  Company Number: PHHY2015KH028103

PATIENT
  Sex: Female
  Weight: 58 kg

DRUGS (3)
  1. GLIVEC [Suspect]
     Active Substance: IMATINIB MESYLATE
     Indication: CHRONIC MYELOID LEUKAEMIA
     Dosage: 400 MG, QD
     Route: 048
     Dates: start: 20150116, end: 20150128
  2. MEDROXYPROGESTERONE [Concomitant]
     Active Substance: MEDROXYPROGESTERONE
     Indication: MENORRHAGIA
     Dosage: 5 MG, BID
     Route: 065
  3. GLIVEC [Suspect]
     Active Substance: IMATINIB MESYLATE
     Dosage: 600 MG, QD
     Route: 048
     Dates: start: 20150128

REACTIONS (16)
  - Sepsis [Unknown]
  - Pneumonia aspiration [Unknown]
  - Cognitive disorder [Unknown]
  - Hyperplasia [Unknown]
  - Contusion [Unknown]
  - Seizure [Unknown]
  - Cerebral haemorrhage [Fatal]
  - Thrombocytopenia [Fatal]
  - Decerebration [Unknown]
  - Vaginal haemorrhage [Unknown]
  - Pyrexia [Unknown]
  - Anaemia [Unknown]
  - Loss of consciousness [Unknown]
  - Muscle twitching [Unknown]
  - Hypophagia [Unknown]
  - Chronic myeloid leukaemia [Unknown]
